FAERS Safety Report 7398885-2 (Version None)
Quarter: 2011Q1

REPORT INFORMATION
  Report Type: 
  Country: None (occurrence: None)
  Receive Date: 20110328
  Receipt Date: 20110314
  Transmission Date: 20110831
  Serious: No
  Sender: FDA-Public Use
  Company Number: 2011-00104

PATIENT
  Age: 60 Year
  Sex: Female
  Weight: 68.0396 kg

DRUGS (3)
  1. ZICAM COLD REMEDY RAPIDMELTS WITH VITAMIN C [Suspect]
     Dosage: AS DIRECTED X 2 WEEKS ; AS DIRECTED X 2 WEEKS
     Dates: start: 20110201, end: 20110201
  2. ZICAM COLD REMEDY RAPIDMELTS WITH VITAMIN C [Suspect]
     Dosage: AS DIRECTED X 2 WEEKS ; AS DIRECTED X 2 WEEKS
     Dates: start: 20110201, end: 20110201
  3. ZICAM COLD REMEDY RAPIDMELTS WITH VITAMIN C [Suspect]

REACTIONS (1)
  - ANOSMIA [None]
